FAERS Safety Report 5017982-X (Version None)
Quarter: 2006Q2

REPORT INFORMATION
  Report Type: 
  Country: None (occurrence: None)
  Receive Date: 20060605
  Receipt Date: 20060524
  Transmission Date: 20061013
  Serious: Yes (Other)
  Sender: FDA-Public Use
  Company Number: GB-GLAXOSMITHKLINE-B0426013A

PATIENT
  Sex: Male

DRUGS (4)
  1. SEROXAT [Suspect]
     Dates: start: 19940513
  2. OLANZAPINE [Concomitant]
  3. AMISULPRIDE [Concomitant]
  4. RISPERIDONE [Concomitant]
     Dates: end: 20011024

REACTIONS (2)
  - DRUG WITHDRAWAL SYNDROME [None]
  - SUICIDAL IDEATION [None]
